FAERS Safety Report 7127402-7 (Version None)
Quarter: 2010Q4

REPORT INFORMATION
  Report Type: 
  Country: None (occurrence: None)
  Receive Date: 20101129
  Receipt Date: 20100609
  Transmission Date: 20110411
  Serious: No
  Sender: FDA-Public Use
  Company Number: US-PFIZER INC-2010049212

PATIENT
  Sex: Female
  Weight: 63.5 kg

DRUGS (14)
  1. REVATIO [Suspect]
     Indication: PULMONARY HYPERTENSION
     Dosage: 20 MG, 3X/DAY
     Route: 048
     Dates: start: 20090101
  2. ALENDRONIC ACID [Concomitant]
     Dosage: UNK
  3. LEVOTHYROXINE [Concomitant]
     Dosage: 175 MG, UNK
  4. PREDNISONE [Concomitant]
     Dosage: 10 MG, UNK
  5. VESICARE [Concomitant]
     Dosage: 5 MG, UNK
  6. FUROSEMIDE [Concomitant]
     Dosage: 40 MG, UNK
  7. POTASSIUM CHLORIDE [Concomitant]
     Dosage: 10 MG, UNK
  8. ERYTHROMYCIN [Concomitant]
     Indication: PHLEBITIS
     Dosage: UNK
  9. VITRON C [Concomitant]
     Dosage: 20MCG TWO TABLETS A DAY
  10. LISINOPRIL [Concomitant]
     Dosage: UNK
  11. NIFEDIPINE [Concomitant]
     Dosage: UNK
  12. ACIDOPHILUS [Concomitant]
     Dosage: TWO TABLETS A DAY
  13. FISH OIL [Concomitant]
     Dosage: UNK
  14. ALBUTEROL [Concomitant]

REACTIONS (3)
  - FEELING ABNORMAL [None]
  - FEELING JITTERY [None]
  - TREMOR [None]
